FAERS Safety Report 9380085 (Version 1)
Quarter: 2013Q2

REPORT INFORMATION
  Report Type: Spontaneous
  Country: GB (occurrence: None)
  Receive Date: 20130628
  Receipt Date: 20130628
  Transmission Date: 20140414
  Serious: Yes (Other)
  Sender: FDA-Public Use
  Company Number: 2013R1-70357

PATIENT
  Age: 41 Year
  Sex: Male

DRUGS (4)
  1. FLUOXETINE (FLUOXETINE) [Suspect]
     Indication: DEPRESSION
     Route: 048
  2. CLOZARIL (CLOZAPINE) [Suspect]
     Indication: SCHIZOPHRENIA
     Route: 048
     Dates: start: 20020529
  3. CLOZARIL (CLOZAPINE) [Suspect]
     Indication: PRODUCT USED FOR UNKNOWN INDICATION
     Route: 048
     Dates: start: 20020529
  4. DIAZEPAM (DIAZEPAM) [Concomitant]

REACTIONS (10)
  - Psychotic disorder [None]
  - Anxiety [None]
  - Balance disorder [None]
  - Basilar migraine [None]
  - Depression [None]
  - Dizziness [None]
  - Migraine [None]
  - Neutropenia [None]
  - Obsessive thoughts [None]
  - White blood cell count decreased [None]
